FAERS Safety Report 10498454 (Version 2)
Quarter: 2014Q4

REPORT INFORMATION
  Report Type: Report from Study
  Country: AR (occurrence: AR)
  Receive Date: 20141006
  Receipt Date: 20141203
  Transmission Date: 20150528
  Serious: Yes (Death)
  Sender: FDA-Public Use
  Company Number: AR-BRISTOL-MYERS SQUIBB COMPANY-21462635

PATIENT
  Age: 67 Year
  Sex: Female

DRUGS (1)
  1. ORENCIA [Suspect]
     Active Substance: ABATACEPT
     Dosage: INTERRUPTED ON 10-SEP-2014
     Route: 042
     Dates: start: 20120111, end: 20140910

REACTIONS (1)
  - Death [Fatal]

NARRATIVE: CASE EVENT DATE: 20140923
